FAERS Safety Report 7010758-3 (Version None)
Quarter: 2010Q3

REPORT INFORMATION
  Report Type: 
  Country: None (occurrence: None)
  Receive Date: 20100923
  Receipt Date: 20100914
  Transmission Date: 20110219
  Serious: Yes (Other)
  Sender: FDA-Public Use
  Company Number: US-PFIZER INC-2010116782

PATIENT

DRUGS (1)
  1. ZYVOX [Suspect]
     Dosage: 600 MG, UNK

REACTIONS (1)
  - HYPERSENSITIVITY [None]
